FAERS Safety Report 4728335-3 (Version None)
Quarter: 2005Q3

REPORT INFORMATION
  Report Type: 
  Country: None (occurrence: None)
  Receive Date: 20050727
  Receipt Date: 20050715
  Transmission Date: 20060218
  Serious: Yes (Other)
  Sender: FDA-Public Use
  Company Number: 215647

PATIENT
  Age: 56 Year
  Sex: Female
  Weight: 135 kg

DRUGS (3)
  1. RAPTIVA [Suspect]
     Indication: PSORIASIS
     Dosage: 135MG, 1/WEEK, SUBCUTANEOUS
     Route: 058
     Dates: start: 20050328, end: 20050601
  2. CELEBREX [Concomitant]
  3. COREG [Concomitant]

REACTIONS (4)
  - DYSPNOEA EXERTIONAL [None]
  - LUNG NEOPLASM [None]
  - PYREXIA [None]
  - SINUSITIS [None]
